FAERS Safety Report 14099763 (Version 1)
Quarter: 2017Q4

REPORT INFORMATION
  Report Type: Not Available
  Country: US (occurrence: US)
  Receive Date: 20171017
  Receipt Date: 20171017
  Transmission Date: 20180321
  Serious: Yes (Other)
  Sender: FDA-Public Use
  Company Number: US-ANIPHARMA-2017-US-012069

PATIENT
  Age: 56 Year
  Sex: Male

DRUGS (3)
  1. VANCOMYCIN HYDROCHLORIDE (NON-SPECIFIC) [Suspect]
     Active Substance: VANCOMYCIN HYDROCHLORIDE
  2. MEROPENEM. [Concomitant]
     Active Substance: MEROPENEM
  3. MICAFUNGIN [Concomitant]
     Active Substance: MICAFUNGIN

REACTIONS (1)
  - Linear IgA disease [Unknown]
